FAERS Safety Report 8770692 (Version 1)
Quarter: 2012Q4

REPORT INFORMATION
  Report Type: 
  Country: DE (occurrence: DE)
  Receive Date: 20120907
  Receipt Date: 20120907
  Transmission Date: 20130627
  Serious: Yes (Hospitalization, Other)
  Sender: FDA-Public Use
  Company Number: DE-UCBSA-063891

PATIENT
  Age: 77 Year
  Sex: Female

DRUGS (5)
  1. KEPPRA [Suspect]
     Dosage: ONCE-ONLY
     Route: 042
  2. TAZOBAC [Concomitant]
     Route: 042
  3. TOREM [Concomitant]
     Route: 042
  4. PANTOPRAZOL [Concomitant]
     Route: 042
  5. ENOXAPARINE [Concomitant]
     Route: 058

REACTIONS (4)
  - Coma [Unknown]
  - Sopor [Unknown]
  - Delirium [Unknown]
  - Overdose [Unknown]
